FAERS Safety Report 24029540 (Version 1)
Quarter: 2024Q2

REPORT INFORMATION
  Report Type: Spontaneous
  Country: US (occurrence: None)
  Receive Date: 20240624
  Receipt Date: 20240624
  Transmission Date: 20240715
  Serious: No
  Sender: FDA-Public Use
  Company Number: None

PATIENT
  Age: 56 Year
  Sex: Female
  Weight: 58.5 kg

DRUGS (6)
  1. CAMPHOR\MENTHOL [Suspect]
     Active Substance: CAMPHOR\MENTHOL
     Indication: Product used for unknown indication
     Dosage: TOPICAL
     Route: 061
     Dates: start: 20240620, end: 20240620
  2. UNSPECIFIED INGREDIENT [Concomitant]
     Active Substance: UNSPECIFIED INGREDIENT
  3. OCCASIONAL ALAVERT [Concomitant]
  4. MULTIVITAMIN [Concomitant]
  5. VITAMIN D NOS [Concomitant]
     Active Substance: CHOLECALCIFEROL\ERGOCALCIFEROL
  6. MAGNESIUM SUPPLEMENT [Concomitant]

REACTIONS (3)
  - Erythema [None]
  - Pruritus [None]
  - Rash papular [None]

NARRATIVE: CASE EVENT DATE: 20240621
